FAERS Safety Report 16298096 (Version 1)
Quarter: 2019Q2

REPORT INFORMATION
  Report Type: Report from Study
  Country: ZA (occurrence: ZA)
  Receive Date: 20190510
  Receipt Date: 20190510
  Transmission Date: 20190711
  Serious: Yes (Other)
  Sender: FDA-Public Use
  Company Number: ZA-ROCHE-2313496

PATIENT
  Age: 44 Year
  Sex: Female

DRUGS (1)
  1. MABTHERA [Suspect]
     Active Substance: RITUXIMAB
     Indication: RHEUMATOID ARTHRITIS
     Dosage: DAY 1 AND DAY 15 NEXT DOSE IS 6 MONTHS LATER.
     Route: 042

REACTIONS (2)
  - Protein total increased [Unknown]
  - Blood brain barrier defect [Unknown]

NARRATIVE: CASE EVENT DATE: 20190503
